FAERS Safety Report 15721195 (Version 1)
Quarter: 2018Q4

REPORT INFORMATION
  Report Type: Spontaneous
  Country: GB (occurrence: GB)
  Receive Date: 20181214
  Receipt Date: 20181214
  Transmission Date: 20190205
  Serious: Yes (Other)
  Sender: FDA-Public Use
  Company Number: GB-AUROBINDO-AUR-APL-2018-059827

PATIENT
  Age: 25 Year
  Sex: Female

DRUGS (1)
  1. SERTRALINE [Suspect]
     Active Substance: SERTRALINE HYDROCHLORIDE
     Indication: ADJUSTMENT DISORDER WITH ANXIETY
     Dosage: 50 MILLIGRAM
     Route: 048
     Dates: start: 20181112, end: 20181114

REACTIONS (5)
  - Speech disorder [Unknown]
  - Eye movement disorder [Unknown]
  - Oculogyric crisis [Recovering/Resolving]
  - Tremor [Unknown]
  - Tic [Unknown]

NARRATIVE: CASE EVENT DATE: 20181114
